FAERS Safety Report 6250099-5 (Version None)
Quarter: 2009Q2

REPORT INFORMATION
  Report Type: 
  Country: None (occurrence: None)
  Receive Date: 20090626
  Receipt Date: 20090618
  Transmission Date: 20091009
  Serious: Yes (Hospitalization)
  Sender: FDA-Public Use
  Company Number: TRP_06292_2009

PATIENT
  Age: 48 Year
  Sex: Female

DRUGS (8)
  1. RIBASPHERE [Suspect]
     Indication: HEPATITIS B
     Dosage: (DF)
     Dates: start: 20090324
  2. RIBASPHERE [Suspect]
     Indication: HEPATITIS C
     Dosage: (DF)
     Dates: start: 20090324
  3. PEG-INTRON [Suspect]
     Indication: HEPATITIS B
     Dosage: (DF SUBCUTANEOUS)
     Route: 058
     Dates: start: 20090324
  4. PEG-INTRON [Suspect]
     Indication: HEPATITIS C
     Dosage: (DF SUBCUTANEOUS)
     Route: 058
     Dates: start: 20090324
  5. XANAX [Concomitant]
  6. PRISTIQ [Concomitant]
  7. SEROQUEL [Concomitant]
  8. AMBIEN [Concomitant]

REACTIONS (9)
  - ANXIETY [None]
  - BLINDNESS UNILATERAL [None]
  - DIPLOPIA [None]
  - EYE SWELLING [None]
  - FALL [None]
  - HAEMORRHAGE [None]
  - HEAD INJURY [None]
  - HYPERHIDROSIS [None]
  - VISION BLURRED [None]
